FAERS Safety Report 13217221 (Version 3)
Quarter: 2017Q1

REPORT INFORMATION
  Report Type: Spontaneous
  Country: GB (occurrence: GB)
  Receive Date: 20170210
  Receipt Date: 20170320
  Transmission Date: 20170428
  Serious: Yes (Hospitalization)
  Sender: FDA-Public Use
  Company Number: GB-009507513-1702GBR003067

PATIENT
  Age: 76 Year
  Sex: Male

DRUGS (20)
  1. DEXAMETHASONE. [Suspect]
     Active Substance: DEXAMETHASONE
     Dosage: 20 MG,1 IN 1 WK
     Route: 065
     Dates: start: 20170119
  2. DARATUMUMAB [Suspect]
     Active Substance: DARATUMUMAB
     Indication: PLASMA CELL MYELOMA
     Dosage: DAILY DOSE: UNKNOWN (1584 MG)
     Route: 041
     Dates: start: 20160818
  3. LOVENOX [Concomitant]
     Active Substance: ENOXAPARIN SODIUM
     Indication: EMBOLISM
     Dosage: DAILY DOSE: 200 MILLIGRAM (100 MG,2 IN 1 D)
     Route: 058
     Dates: start: 20160819
  4. FUROSEMIDE. [Concomitant]
     Active Substance: FUROSEMIDE
     Indication: DYSPNOEA
     Dosage: DAILY DOSE: 20 MILLIGRAM (20 MG,1 IN 1 D)
     Route: 048
     Dates: start: 20160805
  5. DEXAMETHASONE. [Suspect]
     Active Substance: DEXAMETHASONE
     Indication: PLASMA CELL MYELOMA
     Dosage: 20 MG,1 IN 1 WK
     Route: 065
     Dates: start: 20160818
  6. REVLIMID [Suspect]
     Active Substance: LENALIDOMIDE
     Indication: PLASMA CELL MYELOMA
     Dosage: DAILY DOSE: UNKNOWN (25 MG)
     Route: 048
     Dates: start: 20160818, end: 20170111
  7. COMPAZINE [Concomitant]
     Active Substance: PROCHLORPERAZINE MALEATE
     Indication: PROPHYLAXIS
     Dosage: DAILY DOSE: UNKNOWN (10 MG)
     Route: 048
     Dates: start: 20160816
  8. LOVENOX [Concomitant]
     Active Substance: ENOXAPARIN SODIUM
     Dosage: DAILY DOSE: 200 MILLIGRAM (100 MG,2 IN 1 D)
     Route: 058
     Dates: start: 20160930
  9. MIRALAX [Concomitant]
     Active Substance: POLYETHYLENE GLYCOL 3350
     Indication: PROPHYLAXIS
     Dosage: DAILY DOSE: UNKNOWN (17 G)
     Route: 048
     Dates: start: 20160803
  10. SULFAMETHOXAZOLE [Concomitant]
     Active Substance: SULFAMETHOXAZOLE
     Indication: PROPHYLAXIS
     Dosage: DAILY DOSE: 400 MILLIGRAM (400 MG,1 IN 1 D)
     Route: 048
     Dates: start: 20160816
  11. DARATUMUMAB [Suspect]
     Active Substance: DARATUMUMAB
     Dosage: UNKNOWN
     Route: 042
     Dates: start: 20170119
  12. AMLODIPINE [Concomitant]
     Active Substance: AMLODIPINE BESYLATE
     Indication: HYPERTENSION
     Dosage: 2.5 MILLIGRAM (2.5MG, 1 IN 1 D)
     Route: 048
     Dates: start: 2014
  13. CALCIUM D3 [Concomitant]
     Active Substance: CALCIUM\CHOLECALCIFEROL
     Indication: PROPHYLAXIS
     Dosage: DAILY DOSE: UNKNOWN (500 MG)
     Route: 048
     Dates: start: 20160819
  14. ACYCLOVIR. [Concomitant]
     Active Substance: ACYCLOVIR
     Indication: PROPHYLAXIS
     Dosage: DAILY DOSE: 800 MILLIGRAM (400 MG,2 IN 1 D)
     Route: 048
     Dates: start: 20160816
  15. FENTANYL. [Concomitant]
     Active Substance: FENTANYL
     Indication: BACK PAIN
     Dosage: DAILY DOSE: 25 MCG (UNKNOWN)
     Route: 061
     Dates: start: 20160825
  16. SYSTANE (HYPROMELLOSE 2910 (4000 MPA.S)) [Concomitant]
     Active Substance: HYPROMELLOSE 2910 (4000 MPA.S)
     Indication: FLOPPY EYELID SYNDROME
     Dosage: DAILY DOSE: 1 DOSE (UNKNOWN, 1 IN 1 D)
     Route: 047
     Dates: start: 2011
  17. REVLIMID [Suspect]
     Active Substance: LENALIDOMIDE
     Dosage: UNK
     Route: 048
     Dates: start: 20170119
  18. TYLENOL [Concomitant]
     Active Substance: ACETAMINOPHEN
     Indication: BACK PAIN
     Dosage: DAILY DOSE: UNKNOWN (500 MG)
     Route: 048
     Dates: start: 20160805
  19. METOPROLOL. [Concomitant]
     Active Substance: METOPROLOL
     Indication: HYPERTENSION
     Dosage: DAILY DOSE: 100 MILLIGRAM (100 MG,1 IN 1 D)
     Route: 048
     Dates: start: 2014
  20. ZOLEDRONIC ACID [Concomitant]
     Active Substance: ZOLEDRONIC ACID
     Indication: PROPHYLAXIS
     Dosage: DAILY DOSE: UNKNOWN (4 MG, 1 IN 1 M)
     Route: 041
     Dates: start: 20161013

REACTIONS (1)
  - Pneumonia [Recovered/Resolved]

NARRATIVE: CASE EVENT DATE: 20170112
